FAERS Safety Report 20133777 (Version 1)
Quarter: 2021Q4

REPORT INFORMATION
  Report Type: Spontaneous
  Country: GB (occurrence: GB)
  Receive Date: 20211201
  Receipt Date: 20211201
  Transmission Date: 20220303
  Serious: Yes (Other)
  Sender: FDA-Public Use
  Company Number: None

PATIENT
  Age: 62 Year
  Sex: Female
  Weight: 94 kg

DRUGS (18)
  1. BECLOMETHASONE\FORMOTEROL [Concomitant]
     Active Substance: BECLOMETHASONE\FORMOTEROL
     Indication: Ill-defined disorder
     Dosage: INHALE TWO DOSES TWICE A DAY.
     Route: 055
     Dates: start: 20210422
  2. JARDIANCE [Suspect]
     Active Substance: EMPAGLIFLOZIN
     Indication: Ill-defined disorder
     Dates: start: 20211123
  3. AMLODIPINE [Concomitant]
     Active Substance: AMLODIPINE BESYLATE
     Indication: Ill-defined disorder
     Dosage: TAKE ONE TABLET ONCE DAILY.
     Dates: start: 20210422
  4. ATORVASTATIN [Concomitant]
     Active Substance: ATORVASTATIN
     Indication: Ill-defined disorder
     Dosage: TAKE ONE TABLET ONCE DAILY AT NIGHT.
     Dates: start: 20210422
  5. BENDROFLUMETHIAZIDE [Concomitant]
     Active Substance: BENDROFLUMETHIAZIDE
     Indication: Ill-defined disorder
     Dosage: TAKE ONE TABLET ONCE DAILY IN THE MORNING.
     Dates: start: 20210422
  6. CARBIMAZOLE [Concomitant]
     Active Substance: CARBIMAZOLE
     Indication: Ill-defined disorder
     Dosage: TAKE ONE TABLET ONCE DAILY.
     Dates: start: 20210422
  7. CLOTRIMAZOLE [Concomitant]
     Active Substance: CLOTRIMAZOLE
     Indication: Ill-defined disorder
     Dosage: USE AS DIRECTED
     Dates: start: 20211122, end: 20211123
  8. DOXYCYCLINE [Concomitant]
     Active Substance: DOXYCYCLINE
     Indication: Ill-defined disorder
     Dosage: 1 TO BE TAKEN TWICE DAILY
     Dates: start: 20211116, end: 20211123
  9. EMPAGLIFLOZIN [Concomitant]
     Active Substance: EMPAGLIFLOZIN
     Indication: Diabetes mellitus
     Dosage: ONE TABLET TO BE TAKEN ONCE  A DAY FOR DIABETES.
     Dates: start: 20211025
  10. ERYTHROMYCIN [Concomitant]
     Active Substance: ERYTHROMYCIN
     Indication: Ill-defined disorder
     Dosage: TWO TABLETS TO BE TAKEN FOUR TIMES A DAY
     Dates: start: 20211025, end: 20211101
  11. IBUPROFEN [Concomitant]
     Active Substance: IBUPROFEN
     Indication: Back pain
     Dosage: TAKE ONE TABLET 3 TIMES/DAY FOR BACK PAIN.
     Dates: start: 20210422
  12. METFORMIN [Concomitant]
     Active Substance: METFORMIN HYDROCHLORIDE
     Indication: Ill-defined disorder
     Dosage: TAKE TWO TABLETS TWICE DAILY.
     Dates: start: 20210422
  13. MONTELUKAST [Concomitant]
     Active Substance: MONTELUKAST SODIUM
     Indication: Ill-defined disorder
     Dosage: ONE TABLET  TO BE TAKEN AT NIGHT TO HELP CONTRO...
     Dates: start: 20211102
  14. OMEPRAZOLE [Concomitant]
     Active Substance: OMEPRAZOLE
     Indication: Ill-defined disorder
     Dosage: TAKE ONE CAPSULE ONCE DAILY.
     Dates: start: 20210422
  15. PREDNISOLONE [Concomitant]
     Active Substance: PREDNISOLONE
     Indication: Ill-defined disorder
     Dosage: TAKE 30 MG - (6 TABLETS TAKEN TOGETHER). REPEAT EACH MORNING FOR FURTHER 4 DAYS
     Dates: start: 20211108, end: 20211113
  16. RAMIPRIL [Concomitant]
     Active Substance: RAMIPRIL
     Indication: Ill-defined disorder
     Dosage: TAKE ONE CAPSULE ONCE DAILY.
     Dates: start: 20210422
  17. ALBUTEROL [Concomitant]
     Active Substance: ALBUTEROL
     Indication: Ill-defined disorder
     Dosage: TWO PUFFS TO BE INHALED WHEN REQUIRED
     Route: 055
     Dates: start: 20211102, end: 20211103
  18. TRAMADOL [Concomitant]
     Active Substance: TRAMADOL
     Indication: Ill-defined disorder
     Dosage: TAKE ONE-TWO CAPSULES WHEN REQUIRED FOR PAIN, U...
     Dates: start: 20210422

REACTIONS (1)
  - Adverse drug reaction [Unknown]

NARRATIVE: CASE EVENT DATE: 20211123
